FAERS Safety Report 12476707 (Version 5)
Quarter: 2016Q4

REPORT INFORMATION
  Report Type: Report from Study
  Country: US (occurrence: US)
  Receive Date: 20160617
  Receipt Date: 20161024
  Transmission Date: 20170207
  Serious: Yes (Other)
  Sender: FDA-Public Use
  Company Number: US-AMGEN-USASP2016075365

PATIENT
  Age: 68 Year
  Sex: Female
  Weight: 55.78 kg

DRUGS (3)
  1. PROLIA [Suspect]
     Active Substance: DENOSUMAB
     Dosage: UNK
     Route: 065
     Dates: start: 20150123
  2. PROLIA [Suspect]
     Active Substance: DENOSUMAB
     Dosage: UNK
     Route: 065
     Dates: start: 20150728
  3. PROLIA [Suspect]
     Active Substance: DENOSUMAB
     Indication: OSTEOPOROSIS POSTMENOPAUSAL
     Dosage: 60 MG IN 1 ML, Q6MO
     Route: 065
     Dates: start: 20140715

REACTIONS (9)
  - Toothache [Unknown]
  - Osteomyelitis [Unknown]
  - Device failure [Unknown]
  - Sleep disorder due to a general medical condition [Unknown]
  - Bone loss [Unknown]
  - Tooth disorder [Recovering/Resolving]
  - Stress [Unknown]
  - Adverse drug reaction [Unknown]
  - Oral discomfort [Recovering/Resolving]

NARRATIVE: CASE EVENT DATE: 201602
